FAERS Safety Report 8905335 (Version 2)
Quarter: 2012Q4

REPORT INFORMATION
  Report Type: 
  Country: IN (occurrence: IN)
  Receive Date: 20121113
  Receipt Date: 20121122
  Transmission Date: 20130627
  Serious: Yes (Other)
  Sender: FDA-Public Use
  Company Number: IN-RANBAXY-2012RR-61782

PATIENT
  Age: 7 Year
  Sex: Male
  Weight: 24 kg

DRUGS (6)
  1. CIPROFLOXACIN [Suspect]
     Indication: APPENDICITIS
     Dosage: 20 mg/kg/day, infusion, in 2 divided doses
     Route: 065
  2. LEVOFLOXACIN [Suspect]
     Indication: APPENDICITIS
     Dosage: 10 mg/kg/day, infusion
     Route: 065
  3. METRONIDAZOLE [Concomitant]
     Indication: APPENDICITIS
     Dosage: 30 mg/kg/day, in 3 divided doses
     Route: 065
  4. ONDANSETRON [Concomitant]
     Indication: APPENDICITIS
     Dosage: 0.1 mg/kg, prn
     Route: 065
  5. PARACETAMOL [Concomitant]
     Indication: APPENDICITIS
     Dosage: 10 mg/kg, prn
     Route: 048
  6. CEFTRIAXONE [Concomitant]
     Indication: APPENDICITIS
     Dosage: 100mg/kg/day, injection
     Route: 065

REACTIONS (2)
  - Hypersensitivity [Recovered/Resolved]
  - Cross sensitivity reaction [Recovered/Resolved]
